FAERS Safety Report 18378220 (Version 2)
Quarter: 2020Q4

REPORT INFORMATION
  Report Type: Report from Study
  Country: None (occurrence: CA)
  Receive Date: 20201013
  Receipt Date: 20201022
  Transmission Date: 20210114
  Serious: Yes (Other)
  Sender: FDA-Public Use
  Company Number: CA-ABBVIE-20K-028-3461709-00

PATIENT
  Sex: Female
  Weight: 58.9 kg

DRUGS (1)
  1. HUMIRA [Suspect]
     Active Substance: ADALIMUMAB
     Indication: CROHN^S DISEASE
     Route: 058
     Dates: start: 20080515, end: 20200506

REACTIONS (4)
  - Fistula [Unknown]
  - Abscess [Recovered/Resolved]
  - Anogenital dysplasia [Not Recovered/Not Resolved]
  - Squamous cell carcinoma [Unknown]
